FAERS Safety Report 4262987-X (Version None)
Quarter: 2004Q1

REPORT INFORMATION
  Report Type: 
  Country: None (occurrence: None)
  Receive Date: 20040102
  Receipt Date: 20040102
  Transmission Date: 20041129
  Serious: Yes (Life-Threatening, Hospitalization)
  Sender: FDA-Public Use
  Company Number: None

PATIENT
  Sex: Male
  Weight: 87.0906 kg

DRUGS (5)
  1. ONTAK [Suspect]
     Indication: NON-SMALL CELL LUNG CANCER STAGE IV
     Dosage: 18 MCG/KG IV QD X5D/3WKS
     Route: 042
     Dates: start: 20031208, end: 20031212
  2. MORPHINE [Concomitant]
  3. COLACE [Concomitant]
  4. ZOFRAN [Concomitant]
  5. PERCOCET [Concomitant]

REACTIONS (9)
  - ANGIOPATHY [None]
  - CHEST PAIN [None]
  - DYSPNOEA [None]
  - DYSPNOEA EXERTIONAL [None]
  - OEDEMA PERIPHERAL [None]
  - PLEURITIC PAIN [None]
  - PULMONARY EMBOLISM [None]
  - THROMBOSIS [None]
  - WEIGHT INCREASED [None]
